FAERS Safety Report 12924043 (Version 1)
Quarter: 2016Q4

REPORT INFORMATION
  Report Type: Spontaneous
  Country: JP (occurrence: JP)
  Receive Date: 20161109
  Receipt Date: 20161109
  Transmission Date: 20170207
  Serious: Yes (Other)
  Sender: FDA-Public Use
  Company Number: JP-SA-2014SA024542

PATIENT
  Age: 82 Year
  Sex: Female

DRUGS (2)
  1. PLAVIX [Suspect]
     Active Substance: CLOPIDOGREL BISULFATE
     Indication: ANTIPLATELET THERAPY
     Route: 048
     Dates: start: 201311
  2. ASPIRIN. [Concomitant]
     Active Substance: ASPIRIN
     Indication: ANTIPLATELET THERAPY

REACTIONS (5)
  - Hyperkalaemia [Recovered/Resolved]
  - Malaise [Recovered/Resolved]
  - Pulse abnormal [Recovered/Resolved]
  - Palpitations [Recovered/Resolved]
  - Bradycardia [Recovered/Resolved]
